FAERS Safety Report 23837141 (Version 4)
Quarter: 2025Q2

REPORT INFORMATION
  Report Type: Report from Study
  Country: CA (occurrence: CA)
  Receive Date: 20240509
  Receipt Date: 20250418
  Transmission Date: 20250717
  Serious: No
  Sender: TAKEDA
  Company Number: CA-TAKEDA-2024TUS022739

PATIENT
  Sex: Male

DRUGS (24)
  1. VEDOLIZUMAB [Suspect]
     Active Substance: VEDOLIZUMAB
     Indication: Colitis ulcerative
  2. VEDOLIZUMAB [Suspect]
     Active Substance: VEDOLIZUMAB
     Dosage: 300 MILLIGRAM, Q4WEEKS
     Dates: start: 20171205
  3. VEDOLIZUMAB [Suspect]
     Active Substance: VEDOLIZUMAB
     Dosage: 300 MILLIGRAM, Q4WEEKS
  4. VEDOLIZUMAB [Suspect]
     Active Substance: VEDOLIZUMAB
     Dosage: 300 MILLIGRAM, Q4WEEKS
  5. VEDOLIZUMAB [Suspect]
     Active Substance: VEDOLIZUMAB
     Dosage: 300 MILLIGRAM, Q4WEEKS
  6. VEDOLIZUMAB [Suspect]
     Active Substance: VEDOLIZUMAB
     Dosage: 300 MILLIGRAM, Q4WEEKS
  7. VEDOLIZUMAB [Suspect]
     Active Substance: VEDOLIZUMAB
     Dosage: 300 MILLIGRAM, Q4WEEKS
  8. ZOFRAN [Concomitant]
     Active Substance: ONDANSETRON HYDROCHLORIDE
     Indication: Nausea
  9. VITAMIN D [Concomitant]
     Active Substance: VITAMIN D NOS
  10. TACROLIMUS [Concomitant]
     Active Substance: TACROLIMUS
  11. AMLODIPINE [Concomitant]
     Active Substance: AMLODIPINE BESYLATE
  12. AMLODIPINE [Concomitant]
     Active Substance: AMLODIPINE BESYLATE
  13. SAFFRON [Concomitant]
     Active Substance: SAFFRON
  14. TUMS [Concomitant]
     Active Substance: CALCIUM CARBONATE
  15. MYCOPHENOLATE SODIUM [Concomitant]
     Active Substance: MYCOPHENOLATE SODIUM
  16. PREDNISONE [Concomitant]
     Active Substance: PREDNISONE
  17. SEPTRA [Concomitant]
     Active Substance: SULFAMETHOXAZOLE\TRIMETHOPRIM
  18. VALTREX [Concomitant]
     Active Substance: VALACYCLOVIR HYDROCHLORIDE
  19. BISOPROLOL [Concomitant]
     Active Substance: BISOPROLOL
  20. CALCIUM [Concomitant]
     Active Substance: CALCIUM
  21. CARDURA [Concomitant]
     Active Substance: DOXAZOSIN MESYLATE
  22. LASIX [Concomitant]
     Active Substance: FUROSEMIDE
  23. PANTOPRAZOLE [Concomitant]
     Active Substance: PANTOPRAZOLE
  24. TELMISARTAN [Concomitant]
     Active Substance: TELMISARTAN

REACTIONS (3)
  - Fluid retention [Unknown]
  - Heart rate increased [Unknown]
  - Blood pressure increased [Unknown]
